FAERS Safety Report 21516811 (Version 1)
Quarter: 2022Q4

REPORT INFORMATION
  Report Type: Spontaneous
  Country: US (occurrence: US)
  Receive Date: 20221028
  Receipt Date: 20221028
  Transmission Date: 20230113
  Serious: No
  Sender: FDA-Public Use
  Company Number: US-BRISTOL-MYERS SQUIBB COMPANY-2022-125638

PATIENT
  Age: 54 Year
  Sex: Male

DRUGS (1)
  1. CAMZYOS [Suspect]
     Active Substance: MAVACAMTEN
     Indication: Hypertrophic cardiomyopathy
     Dosage: DOSE : 5 MG;     FREQ : ONCE A DAY
     Route: 065

REACTIONS (4)
  - Hypertension [Unknown]
  - Obesity [Unknown]
  - Acquired left ventricle outflow tract obstruction [Unknown]
  - Systolic anterior motion of mitral valve [Unknown]
